FAERS Safety Report 9304422 (Version 1)
Quarter: 2013Q2

REPORT INFORMATION
  Report Type: Report from Study
  Country: TN (occurrence: TN)
  Receive Date: 20130522
  Receipt Date: 20130522
  Transmission Date: 20140414
  Serious: Yes (Death)
  Sender: FDA-Public Use
  Company Number: TN-SANOFI-AVENTIS-2013SA050626

PATIENT
  Age: 62 Year
  Sex: Male

DRUGS (14)
  1. PLAVIX [Suspect]
     Indication: ANGINA UNSTABLE
     Route: 048
     Dates: start: 20130424, end: 20130425
  2. PLAVIX [Suspect]
     Indication: MYOCARDIAL INFARCTION
     Route: 048
     Dates: start: 20130424, end: 20130425
  3. PLAVIX [Suspect]
     Indication: STENT PLACEMENT
     Route: 048
     Dates: start: 20130424, end: 20130425
  4. PLAVIX [Suspect]
     Indication: ANGINA UNSTABLE
     Route: 048
     Dates: start: 20130426, end: 20130429
  5. PLAVIX [Suspect]
     Indication: MYOCARDIAL INFARCTION
     Route: 048
     Dates: start: 20130426, end: 20130429
  6. PLAVIX [Suspect]
     Indication: STENT PLACEMENT
     Route: 048
     Dates: start: 20130426, end: 20130429
  7. ASPEGIC [Concomitant]
     Route: 048
     Dates: end: 20130429
  8. ENALAPRIL [Concomitant]
     Route: 048
     Dates: end: 20130429
  9. INSULIN [Concomitant]
     Route: 048
     Dates: end: 20130429
  10. CORVASAL [Concomitant]
     Route: 048
     Dates: end: 20130429
  11. CRESTOR [Concomitant]
     Route: 048
     Dates: end: 20130429
  12. LISINOPRIL [Concomitant]
     Route: 048
     Dates: end: 20130429
  13. PANTOPRAZOLE [Concomitant]
     Route: 058
     Dates: end: 20130429
  14. LOVENOX [Concomitant]
     Route: 058
     Dates: start: 20130425, end: 20130426

REACTIONS (3)
  - Death [Fatal]
  - Chest pain [Unknown]
  - Vomiting [Unknown]
